FAERS Safety Report 24598714 (Version 5)
Quarter: 2025Q1

REPORT INFORMATION
  Report Type: Spontaneous
  Country: US (occurrence: US)
  Receive Date: 20241110
  Receipt Date: 20250331
  Transmission Date: 20250409
  Serious: No
  Sender: SANOFI AVENTIS
  Company Number: US-SA-2024SA310102

PATIENT
  Age: 63 Year
  Sex: Female
  Weight: 58.18 kg

DRUGS (20)
  1. DUPIXENT [Suspect]
     Active Substance: DUPILUMAB
     Indication: Dermatitis atopic
     Dosage: 300 MG, QOW
     Route: 058
  2. DUPIXENT [Suspect]
     Active Substance: DUPILUMAB
     Route: 058
  3. TRAMADOL [Concomitant]
     Active Substance: TRAMADOL
  4. CELECOXIB [Concomitant]
     Active Substance: CELECOXIB
  5. TRAZODONE HCL [Concomitant]
     Active Substance: TRAZODONE HYDROCHLORIDE
  6. ZOLOFT [Concomitant]
     Active Substance: SERTRALINE HYDROCHLORIDE
  7. QUETIAPINE FUMARATE [Concomitant]
     Active Substance: QUETIAPINE FUMARATE
  8. GABAPENTIN [Concomitant]
     Active Substance: GABAPENTIN
  9. CLONIDINE [Concomitant]
     Active Substance: CLONIDINE
  10. ACYCLOVIR [Concomitant]
     Active Substance: ACYCLOVIR
  11. AMPHETAMINE [Concomitant]
     Active Substance: AMPHETAMINE
  12. HYDROXYZINE PAMOATE [Concomitant]
     Active Substance: HYDROXYZINE PAMOATE
  13. MUPIROCIN [Concomitant]
     Active Substance: MUPIROCIN
  14. LORAZEPAM [Concomitant]
     Active Substance: LORAZEPAM
  15. ADDERALL [Concomitant]
     Active Substance: AMPHETAMINE ASPARTATE\AMPHETAMINE SULFATE\DEXTROAMPHETAMINE SACCHARATE\DEXTROAMPHETAMINE SULFATE
  16. FLUTICASONE PROPIONATE [Concomitant]
     Active Substance: FLUTICASONE PROPIONATE
  17. DEXTROAMPHETAMINE [Concomitant]
     Active Substance: DEXTROAMPHETAMINE
  18. SERTRALINE [Concomitant]
     Active Substance: SERTRALINE HYDROCHLORIDE
  19. TRAZODONE [Concomitant]
     Active Substance: TRAZODONE HYDROCHLORIDE
  20. HYDROCHLOROTHIAZIDE\TRIAMTERENE [Concomitant]
     Active Substance: HYDROCHLOROTHIAZIDE\TRIAMTERENE

REACTIONS (12)
  - Skin lesion [Unknown]
  - Skin disorder [Unknown]
  - Asthenia [Unknown]
  - Weight increased [Unknown]
  - Urticaria [Unknown]
  - Sinusitis [Unknown]
  - Headache [Unknown]
  - Rhinorrhoea [Unknown]
  - Oropharyngeal pain [Unknown]
  - Cough [Unknown]
  - Arthralgia [Unknown]
  - Rash [Unknown]
